FAERS Safety Report 7403126-3 (Version None)
Quarter: 2011Q2

REPORT INFORMATION
  Report Type: 
  Country: None (occurrence: None)
  Receive Date: 20110408
  Receipt Date: 20110404
  Transmission Date: 20111010
  Serious: Yes (Hospitalization, Other)
  Sender: FDA-Public Use
  Company Number: JP-PFIZER INC-2011027325

PATIENT
  Age: 83 Year
  Sex: Male
  Weight: 58.5 kg

DRUGS (4)
  1. LYRICA [Suspect]
     Indication: POST HERPETIC NEURALGIA
     Dosage: 75 MG, 2X/DAY
     Route: 048
     Dates: start: 20101224, end: 20110106
  2. LYRICA [Suspect]
     Dosage: 225 MG, 2X/DAY
     Route: 048
     Dates: start: 20110114, end: 20110204
  3. LYRICA [Suspect]
     Indication: PAIN
     Dosage: 150 MG, 2X/DAY
     Route: 048
     Dates: start: 20110107, end: 20110113
  4. ACONITE [Suspect]
     Indication: PAIN
     Dosage: 3.0 G, 3X/DAY
     Route: 048
     Dates: start: 20110115, end: 20110212

REACTIONS (3)
  - WEIGHT INCREASED [None]
  - PLEURAL EFFUSION [None]
  - CARDIAC FAILURE CONGESTIVE [None]
